FAERS Safety Report 19485972 (Version 3)
Quarter: 2025Q1

REPORT INFORMATION
  Report Type: Spontaneous
  Country: US (occurrence: US)
  Receive Date: 20210702
  Receipt Date: 20250312
  Transmission Date: 20250409
  Serious: No
  Sender: SANOFI AVENTIS
  Company Number: US-SA-SAC20210628001124

PATIENT
  Age: 38 Year
  Sex: Female
  Weight: 74.8 kg

DRUGS (4)
  1. DUPIXENT [Suspect]
     Active Substance: DUPILUMAB
     Indication: Sinus polyp
     Dosage: 300 MG, QOW
     Route: 058
  2. SPIRONOLACTONE [Concomitant]
     Active Substance: SPIRONOLACTONE
  3. VITAMINS [Concomitant]
     Active Substance: VITAMINS
  4. ARAZLO [Concomitant]
     Active Substance: TAZAROTENE

REACTIONS (18)
  - Feeling abnormal [Unknown]
  - Sneezing [Recovering/Resolving]
  - Nasal congestion [Unknown]
  - Upper-airway cough syndrome [Unknown]
  - Asthenia [Unknown]
  - Sleep disorder due to a general medical condition [Unknown]
  - Ear pruritus [Unknown]
  - Rhinorrhoea [Unknown]
  - Injection site mass [Unknown]
  - Cough [Unknown]
  - Sinus polyp [Unknown]
  - Rebound effect [Unknown]
  - Injection site inflammation [Recovered/Resolved]
  - Injection site swelling [Recovered/Resolved]
  - Injection site erythema [Recovered/Resolved]
  - Product dose omission issue [Unknown]
  - Product use in unapproved indication [Unknown]
  - Intercepted product storage error [Unknown]
